FAERS Safety Report 18455178 (Version 1)
Quarter: 2020Q4

REPORT INFORMATION
  Report Type: Spontaneous
  Country: BR (occurrence: BR)
  Receive Date: 20201103
  Receipt Date: 20201103
  Transmission Date: 20210114
  Serious: Yes (Other)
  Sender: FDA-Public Use
  Company Number: BR-TAKEDA-2020TUS046410

PATIENT

DRUGS (1)
  1. VENVANSE [Suspect]
     Active Substance: LISDEXAMFETAMINE DIMESYLATE

REACTIONS (8)
  - Seizure [Unknown]
  - Cardiac arrest [Unknown]
  - Neoplasm malignant [Unknown]
  - Renal failure [Unknown]
  - Shock haemorrhagic [Unknown]
  - Intestinal obstruction [Unknown]
  - Coma [Unknown]
  - Hepatic lesion [Unknown]
